FAERS Safety Report 10477812 (Version 1)
Quarter: 2014Q3

REPORT INFORMATION
  Report Type: Spontaneous
  Country: IT (occurrence: IT)
  Receive Date: 20140926
  Receipt Date: 20140926
  Transmission Date: 20150326
  Serious: Yes (Hospitalization)
  Sender: FDA-Public Use
  Company Number: PHHY2014IT121905

PATIENT

DRUGS (3)
  1. ADALAT CRONO [Concomitant]
     Active Substance: NIFEDIPINE
     Dosage: 20 MG, UNK
  2. CITALOPRAM [Suspect]
     Active Substance: CITALOPRAM HYDROBROMIDE
     Dosage: 1 DF, QD
     Route: 048
     Dates: start: 20110101, end: 20140916
  3. MODURETIC 5-50 [Suspect]
     Active Substance: AMILORIDE HYDROCHLORIDE\HYDROCHLOROTHIAZIDE
     Dosage: 1 DF, QD
     Route: 048
     Dates: start: 20140904, end: 20140916

REACTIONS (3)
  - Bradykinesia [Recovering/Resolving]
  - Bradyphrenia [Recovering/Resolving]
  - Hyponatraemia [Recovering/Resolving]

NARRATIVE: CASE EVENT DATE: 20140916
